FAERS Safety Report 4732326-6 (Version None)
Quarter: 2005Q3

REPORT INFORMATION
  Report Type: 
  Country: None (occurrence: None)
  Receive Date: 20050726
  Receipt Date: 20050207
  Transmission Date: 20060218
  Serious: No
  Sender: FDA-Public Use
  Company Number: 05USA0057

PATIENT
  Sex: Male

DRUGS (1)
  1. AGGRASTAT [Suspect]
     Indication: ACUTE CORONARY SYNDROME
     Dosage: 0.1
     Dates: start: 20031106

REACTIONS (2)
  - HAEMATURIA [None]
  - HAEMOPTYSIS [None]
